FAERS Safety Report 25564019 (Version 1)
Quarter: 2025Q3

REPORT INFORMATION
  Report Type: Spontaneous
  Country: US (occurrence: US)
  Receive Date: 20250716
  Receipt Date: 20250716
  Transmission Date: 20251021
  Serious: No
  Sender: NOVO NORDISK
  Company Number: US-NOVOPROD-1358049

PATIENT
  Age: 63 Year
  Sex: Female

DRUGS (5)
  1. OZEMPIC [Suspect]
     Active Substance: SEMAGLUTIDE
     Indication: Type 2 diabetes mellitus
     Dosage: 1 MG, QW
     Route: 058
     Dates: start: 2024
  2. OZEMPIC [Suspect]
     Active Substance: SEMAGLUTIDE
     Indication: Weight decreased
  3. NOVOLOG [Suspect]
     Active Substance: INSULIN ASPART
     Indication: Type 2 diabetes mellitus
     Route: 058
  4. NOVOLOG [Suspect]
     Active Substance: INSULIN ASPART
     Route: 058
  5. NovoFine Plus 4mm (32G) [Concomitant]
     Indication: Type 2 diabetes mellitus

REACTIONS (7)
  - Feeding disorder [Recovered/Resolved]
  - Abdominal distension [Recovered/Resolved]
  - Gastrooesophageal reflux disease [Recovered/Resolved]
  - Condition aggravated [Recovered/Resolved]
  - Abdominal pain [Recovered/Resolved]
  - Constipation [Recovered/Resolved]
  - Diarrhoea [Recovered/Resolved]

NARRATIVE: CASE EVENT DATE: 20241001
